FAERS Safety Report 9210399 (Version 2)
Quarter: 2013Q2

REPORT INFORMATION
  Report Type: Report from Study
  Country: ES (occurrence: ES)
  Receive Date: 20130404
  Receipt Date: 20130404
  Transmission Date: 20140414
  Serious: Yes (Hospitalization)
  Sender: FDA-Public Use
  Company Number: PHHO2013ES004350

PATIENT
  Age: 71 Year
  Sex: Male
  Weight: 52 kg

DRUGS (8)
  1. BHQ880 [Suspect]
     Indication: PLASMA CELL MYELOMA
     Dosage: 510 MG, UNK
     Dates: start: 20120828
  2. BORTEZOMIB [Suspect]
     Indication: PLASMA CELL MYELOMA
     Dosage: 1015 MG, UNK
     Dates: start: 20120828
  3. BHQ880 [Suspect]
     Indication: PLASMA CELL MYELOMA
     Dosage: NO TREATMENT
  4. BLINDED NO TREATMENT RECEIVED [Suspect]
     Indication: PLASMA CELL MYELOMA
     Dosage: NO TREATMENT
  5. BLINDED PLACEBO [Suspect]
     Indication: PLASMA CELL MYELOMA
     Dosage: NO TREATMENT
  6. DEXAMETHASONE [Concomitant]
     Indication: PLASMA CELL MYELOMA
     Dosage: 20 MG, UNK
     Dates: start: 20120828
  7. OMEPRAZOLE [Concomitant]
     Indication: PROPHYLAXIS
     Dosage: 20 MG, UNK
  8. FOLIC ACID [Concomitant]
     Indication: METASTASES TO BONE
     Dosage: UNK

REACTIONS (1)
  - Pleural effusion [Unknown]
